FAERS Safety Report 4435255-0 (Version None)
Quarter: 2004Q3

REPORT INFORMATION
  Report Type: 
  Country: None (occurrence: None)
  Receive Date: 20040827
  Receipt Date: 20040823
  Transmission Date: 20050211
  Serious: Yes (Hospitalization)
  Sender: FDA-Public Use
  Company Number: FR-GLAXOSMITHKLINE-B0343620A

PATIENT
  Age: 39 Year
  Sex: Female

DRUGS (3)
  1. COMBIVIR [Suspect]
     Indication: HIV INFECTION
     Dosage: 1UD TWICE PER DAY
     Route: 048
     Dates: start: 20040703, end: 20040714
  2. VIRAMUNE [Suspect]
     Indication: HIV INFECTION
     Dosage: 200MG PER DAY
     Route: 048
     Dates: start: 20040703, end: 20040713
  3. TRIFLUCAN [Concomitant]
     Dosage: 200MG PER DAY
     Route: 048

REACTIONS (9)
  - ABDOMINAL PAIN [None]
  - ASTHENIA [None]
  - EYELID OEDEMA [None]
  - FACE OEDEMA [None]
  - HEADACHE [None]
  - PRURITUS [None]
  - PYREXIA [None]
  - RASH PAPULAR [None]
  - RESPIRATORY DISORDER [None]
